FAERS Safety Report 19884541 (Version 3)
Quarter: 2021Q4

REPORT INFORMATION
  Report Type: Report from Study
  Country: DE (occurrence: DE)
  Receive Date: 20210927
  Receipt Date: 20211102
  Transmission Date: 20220303
  Serious: Yes (Other)
  Sender: FDA-Public Use
  Company Number: DE-ORGANON-O2109DEU000848

PATIENT
  Age: 61 Year
  Sex: Female

DRUGS (1)
  1. ALENDRONIC ACID [Suspect]
     Active Substance: ALENDRONIC ACID
     Indication: Giant cell arteritis
     Dosage: UNK
     Route: 048

REACTIONS (2)
  - Osteonecrosis of jaw [Unknown]
  - Product use in unapproved indication [Unknown]
